FAERS Safety Report 6451203-6 (Version None)
Quarter: 2009Q4

REPORT INFORMATION
  Report Type: 
  Country: None (occurrence: None)
  Receive Date: 20091123
  Receipt Date: 20091116
  Transmission Date: 20100525
  Serious: Yes (Other)
  Sender: FDA-Public Use
  Company Number: BR-PFIZER INC-2009288096

PATIENT
  Age: 44 Year
  Sex: Male
  Weight: 82 kg

DRUGS (5)
  1. XALATAN [Suspect]
     Indication: GLAUCOMA
     Dosage: 3 UG, 1X/DAY
     Route: 047
     Dates: start: 20080101
  2. BI-PROFENID [Concomitant]
     Dosage: UNK
  3. COSOPT [Concomitant]
     Dosage: UNK
  4. ALPHAGAN [Concomitant]
     Dosage: UNK
  5. TIMOPTIC [Concomitant]
     Dosage: UNK

REACTIONS (1)
  - INTRAOCULAR PRESSURE INCREASED [None]
